FAERS Safety Report 11855302 (Version 3)
Quarter: 2016Q1

REPORT INFORMATION
  Report Type: Spontaneous
  Country: TR (occurrence: TR)
  Receive Date: 20151221
  Receipt Date: 20160112
  Transmission Date: 20160526
  Serious: Yes (Hospitalization)
  Sender: FDA-Public Use
  Company Number: PHHY2015TR165457

PATIENT
  Age: 34 Year
  Sex: Male

DRUGS (4)
  1. MOTILIUM [Concomitant]
     Active Substance: DOMPERIDONE
     Indication: PRODUCT USED FOR UNKNOWN INDICATION
     Dosage: 300 MG, QD
     Route: 048
  2. STALEVO [Suspect]
     Active Substance: CARBIDOPA\ENTACAPONE\LEVODOPA
     Indication: PARKINSON^S DISEASE
     Dosage: 450 MG, QD (50/12.5/200 MG)
     Route: 048
  3. STALEVO [Suspect]
     Active Substance: CARBIDOPA\ENTACAPONE\LEVODOPA
     Dosage: 450 MG, QD (50/12.5/200 MG)
     Route: 048
  4. APOMORPHINE [Suspect]
     Active Substance: APOMORPHINE
     Indication: PARKINSON^S DISEASE
     Route: 065

REACTIONS (7)
  - Dyskinesia [Recovered/Resolved]
  - Confusional state [Recovered/Resolved]
  - Chorea [Recovered/Resolved]
  - Dopamine dysregulation syndrome [Recovered/Resolved]
  - Intentional overdose [Unknown]
  - Restlessness [Recovered/Resolved]
  - Drug ineffective [Unknown]

NARRATIVE: CASE EVENT DATE: 20111016
